FAERS Safety Report 8371084-3 (Version None)
Quarter: 2012Q2

REPORT INFORMATION
  Report Type: 
  Country: None (occurrence: None)
  Receive Date: 20120518
  Receipt Date: 20111207
  Transmission Date: 20120825
  Serious: No
  Sender: FDA-Public Use
  Company Number: US-BRISTOL-MYERS SQUIBB COMPANY-16275588

PATIENT
  Sex: Female

DRUGS (1)
  1. BARACLUDE [Suspect]

REACTIONS (1)
  - ANAEMIA MACROCYTIC [None]
